FAERS Safety Report 9284111 (Version 1)
Quarter: 2013Q2

REPORT INFORMATION
  Report Type: Spontaneous
  Country: US (occurrence: US)
  Receive Date: 20130510
  Receipt Date: 20130510
  Transmission Date: 20140414
  Serious: Yes (Other)
  Sender: FDA-Public Use
  Company Number: US-PURDUE-USA-2013-0101764

PATIENT
  Age: 53 Year
  Sex: Male

DRUGS (16)
  1. OXYCONTIN (NDA 22-272) [Suspect]
     Indication: PAIN
     Dosage: 30 MG, TID
  2. OXYCONTIN (NDA 22-272) [Suspect]
     Dosage: 80 MG, TID
     Route: 048
     Dates: end: 201208
  3. LANTUS [Concomitant]
     Indication: DIABETES MELLITUS
     Dosage: 110 ML, DAILY
     Route: 058
     Dates: start: 1996
  4. HUMULIN R [Concomitant]
     Indication: DIABETES MELLITUS
     Dosage: BASED ON SLIDING SCALE
     Route: 058
     Dates: start: 1996
  5. ISOSORBIDE MONONITRATE [Concomitant]
     Indication: ANGINA PECTORIS
     Dosage: 30 MG, DAILY
     Route: 048
     Dates: start: 201208
  6. PLAVIX [Concomitant]
     Indication: ANTICOAGULANT THERAPY
     Dosage: 75 MG, DAILY
     Route: 048
     Dates: start: 2011
  7. PROAIR                             /00972202/ [Concomitant]
     Indication: CHRONIC OBSTRUCTIVE PULMONARY DISEASE
     Dosage: 2 PUFF, BID
     Route: 055
     Dates: start: 2009
  8. ALPRAZOLAM [Concomitant]
     Indication: PANIC ATTACK
     Dosage: 2 MG, QID PRN
     Route: 048
     Dates: start: 2005
  9. ADDERALL [Concomitant]
     Indication: DEPRESSED LEVEL OF CONSCIOUSNESS
     Dosage: 30 MG, TID
     Route: 048
  10. CITALOPRAM                         /00582602/ [Concomitant]
     Indication: DEPRESSION
     Dosage: 80 MG, DAILY
     Route: 048
     Dates: start: 2004
  11. CHANTIX [Concomitant]
     Indication: SMOKING CESSATION THERAPY
     Dosage: 1 MG, BID
     Route: 048
  12. SIMVASTATIN [Concomitant]
     Indication: BLOOD CHOLESTEROL
     Dosage: 40 MG, DAILY
     Route: 048
     Dates: start: 2004
  13. METFORMIN [Concomitant]
     Indication: DIABETES MELLITUS
     Dosage: 1000 MG, BID
     Route: 048
     Dates: start: 1996
  14. PANTOPRAZOLE [Concomitant]
     Indication: GASTRIC DISORDER
     Dosage: 40 MG, BID
     Route: 048
     Dates: start: 2011
  15. EVOXAC [Concomitant]
     Indication: DRY MOUTH
     Dosage: 30 MG, 2-3 TIMES DAILY
     Route: 048
     Dates: start: 2008
  16. TRIAMCINOLONE [Concomitant]
     Indication: SKIN ULCER
     Route: 061

REACTIONS (5)
  - Intervertebral disc operation [Unknown]
  - Lymphadenopathy [Unknown]
  - Dyspepsia [Unknown]
  - Vomiting [Recovered/Resolved]
  - Bedridden [Unknown]
